FAERS Safety Report 6274288-9 (Version None)
Quarter: 2009Q3

REPORT INFORMATION
  Report Type: 
  Country: None (occurrence: None)
  Receive Date: 20090720
  Receipt Date: 20090327
  Transmission Date: 20100115
  Serious: Yes (Other)
  Sender: FDA-Public Use
  Company Number: US-BAYER-200920263NA

PATIENT
  Age: 41 Year
  Sex: Female
  Weight: 72 kg

DRUGS (20)
  1. MAGNEVIST [Suspect]
     Indication: ANGIOGRAM
     Route: 042
     Dates: start: 20070223, end: 20070223
  2. OPTIMARK [Suspect]
     Indication: NUCLEAR MAGNETIC RESONANCE IMAGING BRAIN
  3. RENAGEL [Concomitant]
     Dosage: WITH MEALS
  4. ALBUTEROL [Concomitant]
  5. SENISPAR (INTERPRETED AS SENSIPAR) [Concomitant]
  6. COZAAR [Concomitant]
  7. CLONIDINE [Concomitant]
  8. GENTAMYCIN SULFATE [Concomitant]
  9. LEVAQUIN [Concomitant]
  10. CARTIA XT [Concomitant]
  11. PHOSLO [Concomitant]
  12. WARFARIN SODIUM [Concomitant]
  13. NORVASC [Concomitant]
  14. DIOVAN [Concomitant]
  15. EPOGEN [Concomitant]
  16. ATROVENT [Concomitant]
  17. LOPRESSOR [Concomitant]
  18. DILANTIN [Concomitant]
  19. ADVAIR HFA [Concomitant]
  20. LOTEMAX [Concomitant]

REACTIONS (21)
  - ABASIA [None]
  - ARTHRALGIA [None]
  - ASTHENIA [None]
  - DYSSTASIA [None]
  - EYE INFLAMMATION [None]
  - GRIP STRENGTH DECREASED [None]
  - JOINT CONTRACTURE [None]
  - JOINT RANGE OF MOTION DECREASED [None]
  - JOINT STIFFNESS [None]
  - MOBILITY DECREASED [None]
  - MORPHOEA [None]
  - MUSCLE ATROPHY [None]
  - MUSCLE RIGIDITY [None]
  - MUSCLE TIGHTNESS [None]
  - MUSCULOSKELETAL STIFFNESS [None]
  - NEPHROGENIC SYSTEMIC FIBROSIS [None]
  - PAIN [None]
  - SCLERITIS [None]
  - SCLERODACTYLIA [None]
  - SKIN INDURATION [None]
  - SLEEP DISORDER [None]
